FAERS Safety Report 20112659 (Version 1)
Quarter: 2021Q4

REPORT INFORMATION
  Report Type: Report from Study
  Country: BR (occurrence: BR)
  Receive Date: 20211125
  Receipt Date: 20211125
  Transmission Date: 20220303
  Serious: Yes (Other)
  Sender: FDA-Public Use
  Company Number: BR-NOVARTISPH-NVSC2021BR266000

PATIENT
  Age: 40 Year
  Sex: Female

DRUGS (3)
  1. RIBOCICLIB [Suspect]
     Active Substance: RIBOCICLIB
     Indication: Product used for unknown indication
     Dosage: UNK
     Route: 065
     Dates: start: 20190605
  2. FULVESTRANT [Suspect]
     Active Substance: FULVESTRANT
     Indication: Product used for unknown indication
     Dosage: UNK
     Route: 065
     Dates: start: 20190415
  3. ZOLEDRONIC ACID [Suspect]
     Active Substance: ZOLEDRONIC ACID
     Indication: Product used for unknown indication
     Dosage: UNK
     Route: 065
     Dates: start: 20190527

REACTIONS (10)
  - Breast cancer [Unknown]
  - Multiple sclerosis [Unknown]
  - Neoplasm malignant [Unknown]
  - Vasogenic cerebral oedema [Unknown]
  - Astrocytoma, low grade [Unknown]
  - Nodule [Unknown]
  - Breast mass [Unknown]
  - Pulmonary mass [Unknown]
  - Cholelithiasis [Unknown]
  - Bone lesion [Unknown]

NARRATIVE: CASE EVENT DATE: 20190418
